FAERS Safety Report 7029024-5 (Version None)
Quarter: 2010Q4

REPORT INFORMATION
  Report Type: 
  Country: None (occurrence: None)
  Receive Date: 20101005
  Receipt Date: 20101001
  Transmission Date: 20110411
  Serious: Yes (Life-Threatening)
  Sender: FDA-Public Use
  Company Number: A0884621A

PATIENT
  Age: 58 Year
  Sex: Male

DRUGS (13)
  1. AVANDAMET [Suspect]
     Indication: PRODUCT USED FOR UNKNOWN INDICATION
     Route: 048
  2. CELEBREX [Suspect]
     Indication: PRODUCT USED FOR UNKNOWN INDICATION
     Dosage: 200MG PER DAY
     Route: 048
  3. APO-ZOPICLONE [Concomitant]
     Route: 048
  4. ASPIRIN [Concomitant]
     Route: 048
  5. CAPSAICIN [Concomitant]
     Route: 061
  6. EFFEXOR XR [Concomitant]
     Route: 048
  7. ELAVIL [Concomitant]
     Route: 048
  8. FELODIPINE [Concomitant]
     Route: 065
  9. GLYBURIDE [Concomitant]
     Route: 065
  10. INDAPAMIDE [Concomitant]
     Route: 065
  11. LIPITOR [Concomitant]
     Route: 048
  12. SEROQUEL [Concomitant]
     Route: 048
  13. VASOTEC [Concomitant]
     Route: 048

REACTIONS (3)
  - CONDITION AGGRAVATED [None]
  - MUSCULOSKELETAL PAIN [None]
  - MYOCARDIAL INFARCTION [None]
